FAERS Safety Report 4781137-4 (Version None)
Quarter: 2005Q3

REPORT INFORMATION
  Report Type: 
  Country: None (occurrence: None)
  Receive Date: 20050926
  Receipt Date: 20050915
  Transmission Date: 20060218
  Serious: Yes (Congenital Anomaly)
  Sender: FDA-Public Use
  Company Number: 2005129560

PATIENT
  Age: 1 Day
  Sex: Female

DRUGS (3)
  1. ZOLOFT [Suspect]
     Indication: ILL-DEFINED DISORDER
     Dosage: PLACENTAL
     Route: 064
  2. PROMETHAZINE HCL [Suspect]
     Indication: ILL-DEFINED DISORDER
     Dosage: PLACENTAL
     Route: 064
  3. LEVOTHYROXINE SODIUM [Suspect]
     Indication: ILL-DEFINED DISORDER
     Dosage: PLACENTAL
     Route: 064

REACTIONS (11)
  - CONGENITAL NOSE MALFORMATION [None]
  - CONGENITAL NYSTAGMUS [None]
  - DEVELOPMENTAL COORDINATION DISORDER [None]
  - DRUG EXPOSURE DURING PREGNANCY [None]
  - EYE MOVEMENT DISORDER [None]
  - FALLOT'S TETRALOGY [None]
  - HYPERTELORISM OF ORBIT [None]
  - NEONATAL DISORDER [None]
  - SKULL MALFORMATION [None]
  - STRABISMUS CONGENITAL [None]
  - VASCULAR ANOMALY [None]
